FAERS Safety Report 23034797 (Version 1)
Quarter: 2023Q4

REPORT INFORMATION
  Report Type: Spontaneous
  Country: US (occurrence: None)
  Receive Date: 20231005
  Receipt Date: 20231005
  Transmission Date: 20240110
  Serious: Yes (Other)
  Sender: FDA-Public Use
  Company Number: None

PATIENT
  Age: 80 Year
  Sex: Female
  Weight: 71.67 kg

DRUGS (17)
  1. EVENITY [Suspect]
     Active Substance: ROMOSOZUMAB-AQQG
     Indication: Bone growth stimulation
     Dosage: FREQUENCY : MONTHLY;?
     Route: 058
     Dates: start: 20230702, end: 20230829
  2. LEVOTHYROXINE [Concomitant]
     Active Substance: LEVOTHYROXINE
  3. PROTOPIC [Concomitant]
     Active Substance: TACROLIMUS
  4. TIMOLOL DROPS [Concomitant]
  5. TRAVATAN DROPS [Concomitant]
  6. LINZESS [Concomitant]
     Active Substance: LINACLOTIDE
  7. MIRALAX [Concomitant]
     Active Substance: POLYETHYLENE GLYCOL 3350
  8. ZYRTEC [Concomitant]
     Active Substance: CETIRIZINE HYDROCHLORIDE
  9. MIRALAX [Concomitant]
     Active Substance: POLYETHYLENE GLYCOL 3350
  10. SENNOCOT [Concomitant]
  11. DUCOLOX [Concomitant]
  12. AREADS 2 [Concomitant]
  13. VITAMIN D3 [Concomitant]
     Active Substance: CHOLECALCIFEROL
  14. SENIOR MULTI VIT [Concomitant]
  15. POTASSIUM/MAGNESIUM [Concomitant]
  16. GLUCOCAMINE [Concomitant]
  17. SUSTAIN MOISTURE DROPS [Concomitant]

REACTIONS (7)
  - Peripheral swelling [None]
  - Injection site pain [None]
  - Injection site warmth [None]
  - Injection site swelling [None]
  - Injection site mass [None]
  - Injection site rash [None]
  - Injection site erythema [None]

NARRATIVE: CASE EVENT DATE: 20230830
